FAERS Safety Report 12758239 (Version 3)
Quarter: 2016Q4

REPORT INFORMATION
  Report Type: Spontaneous
  Country: JP (occurrence: JP)
  Receive Date: 20160919
  Receipt Date: 20161006
  Transmission Date: 20170207
  Serious: Yes (Hospitalization, Other)
  Sender: FDA-Public Use
  Company Number: JP-ABBVIE-16K-087-1674156-00

PATIENT
  Age: 67 Year
  Sex: Male
  Weight: 74 kg

DRUGS (4)
  1. ACARBOSE. [Concomitant]
     Active Substance: ACARBOSE
     Indication: DIABETES MELLITUS
     Dates: end: 2016
  2. CICLOSPORIN [Concomitant]
     Active Substance: CYCLOSPORINE
     Indication: PSORIASIS
     Route: 048
     Dates: start: 2001, end: 2015
  3. HUMIRA [Suspect]
     Active Substance: ADALIMUMAB
     Indication: PSORIASIS
     Route: 058
     Dates: start: 20150728, end: 20160726
  4. ACARBOSE. [Concomitant]
     Active Substance: ACARBOSE
     Dates: start: 2016

REACTIONS (11)
  - Gastrointestinal necrosis [Unknown]
  - Chronic gastritis [Unknown]
  - Metastatic gastric cancer [Unknown]
  - Gastrointestinal wall thickening [Unknown]
  - Coagulopathy [Unknown]
  - Tumour haemorrhage [Unknown]
  - Gastric ulcer [Unknown]
  - Adrenomegaly [Not Recovered/Not Resolved]
  - Adrenal mass [Not Recovered/Not Resolved]
  - Lymphadenopathy [Unknown]
  - Iron deficiency anaemia [Not Recovered/Not Resolved]

NARRATIVE: CASE EVENT DATE: 201601
